FAERS Safety Report 5073043-5 (Version None)
Quarter: 2006Q3

REPORT INFORMATION
  Report Type: 
  Country: None (occurrence: None)
  Receive Date: 20060802
  Receipt Date: 20060721
  Transmission Date: 20061208
  Serious: Yes (Life-Threatening, Hospitalization, Other)
  Sender: FDA-Public Use
  Company Number: 2004215970DE

PATIENT
  Age: 11 Year
  Sex: Female

DRUGS (2)
  1. GENOTROPIN [Suspect]
     Indication: HYPOPITUITARISM
     Dosage: 0.8 MG (0.8 MG, DAILY) UNKNOWN
     Dates: start: 19981113, end: 20030120
  2. LEUPROLIDE ACETATE [Concomitant]

REACTIONS (4)
  - NEUROBLASTOMA [None]
  - OSTEONECROSIS [None]
  - RECURRENT CANCER [None]
  - STEM CELL TRANSPLANT [None]
